FAERS Safety Report 9369366 (Version 1)
Quarter: 2013Q2

REPORT INFORMATION
  Report Type: Spontaneous
  Country: US (occurrence: None)
  Receive Date: 20130625
  Receipt Date: 20130625
  Transmission Date: 20140414
  Serious: Yes (Other)
  Sender: FDA-Public Use
  Company Number: None

PATIENT
  Sex: Female
  Weight: 46 kg

DRUGS (2)
  1. TRANXENE [Suspect]
     Indication: CEREBRAL PALSY
     Dosage: 90  TAB  1 TAB TID
     Route: 048
     Dates: start: 201105
  2. TRANXENE [Suspect]
     Indication: EPILEPSY
     Dosage: 90  TAB  1 TAB TID
     Route: 048
     Dates: start: 201105

REACTIONS (3)
  - Product substitution issue [None]
  - Drug ineffective [None]
  - Convulsion [None]
